FAERS Safety Report 4768222-8 (Version None)
Quarter: 2005Q3

REPORT INFORMATION
  Report Type: 
  Country: None (occurrence: None)
  Receive Date: 20050913
  Receipt Date: 20050830
  Transmission Date: 20060218
  Serious: Yes (Other)
  Sender: FDA-Public Use
  Company Number: 2005-US-00009

PATIENT
  Age: 45 Year
  Sex: Male

DRUGS (4)
  1. CLOZAPINE [Suspect]
     Indication: SCHIZOPHRENIA
     Dosage: 200 MG, QD, ORAL
     Route: 048
  2. ASPIRIN [Concomitant]
  3. METOPROLOL [Concomitant]
  4. LORAZEPAM [Concomitant]

REACTIONS (1)
  - EOSINOPHILIC COLITIS [None]
